FAERS Safety Report 17579316 (Version 1)
Quarter: 2020Q1

REPORT INFORMATION
  Report Type: Spontaneous
  Country: US (occurrence: US)
  Receive Date: 20200325
  Receipt Date: 20200325
  Transmission Date: 20200409
  Serious: No
  Sender: FDA-Public Use
  Company Number: US-ALLERGAN-1934706US

PATIENT
  Sex: Female
  Weight: 76.2 kg

DRUGS (1)
  1. OXYBUTYNIN PCH - BP [Suspect]
     Active Substance: OXYBUTYNIN
     Indication: URINARY INCONTINENCE
     Dosage: UNKNOWN
     Route: 065

REACTIONS (4)
  - Dizziness [Unknown]
  - Dry mouth [Unknown]
  - Drug ineffective [Unknown]
  - Impaired driving ability [Unknown]
